FAERS Safety Report 14848930 (Version 1)
Quarter: 2018Q2

REPORT INFORMATION
  Report Type: Spontaneous
  Country: NL (occurrence: NL)
  Receive Date: 20180504
  Receipt Date: 20180504
  Transmission Date: 20180711
  Serious: Yes (Other)
  Sender: FDA-Public Use
  Company Number: NL-ASTRAZENECA-2018SE57884

PATIENT
  Age: 49 Year
  Sex: Male
  Weight: 105 kg

DRUGS (1)
  1. OMECAT CAPSULE MSR 40MG [Suspect]
     Active Substance: OMEPRAZOLE
     Indication: PRODUCT USED FOR UNKNOWN INDICATION
     Dosage: 40 MG
     Route: 048
     Dates: start: 2018, end: 20180327

REACTIONS (7)
  - Calculus urinary [Recovering/Resolving]
  - Dyspepsia [Recovering/Resolving]
  - Diarrhoea [Recovering/Resolving]
  - Breast pain [Not Recovered/Not Resolved]
  - Fatigue [Recovered/Resolved]
  - Weight increased [Unknown]
  - Haematemesis [Unknown]

NARRATIVE: CASE EVENT DATE: 201803
